FAERS Safety Report 9537232 (Version 1)
Quarter: 2013Q3

REPORT INFORMATION
  Report Type: Spontaneous
  Country: US (occurrence: US)
  Receive Date: 20130919
  Receipt Date: 20130919
  Transmission Date: 20140515
  Serious: No
  Sender: FDA-Public Use
  Company Number: US-PURDUE-USA-2013-0099021

PATIENT
  Age: 67 Year
  Sex: Female
  Weight: 45.35 kg

DRUGS (2)
  1. INTERMEZZO [Suspect]
     Indication: MIDDLE INSOMNIA
     Dosage: 1.75 MG, PRN
     Route: 060
     Dates: start: 20121229, end: 20130211
  2. INTERMEZZO [Suspect]
     Dosage: 3.5 MG, PRN
     Route: 060
     Dates: start: 20121229, end: 20130211

REACTIONS (4)
  - Wrong technique in drug usage process [Not Recovered/Not Resolved]
  - Inappropriate schedule of drug administration [Not Recovered/Not Resolved]
  - Intentional drug misuse [Not Recovered/Not Resolved]
  - Drug ineffective [Not Recovered/Not Resolved]
